FAERS Safety Report 4603118-3 (Version None)
Quarter: 2005Q1

REPORT INFORMATION
  Report Type: 
  Country: None (occurrence: None)
  Receive Date: 20050309
  Receipt Date: 20050223
  Transmission Date: 20050727
  Serious: Yes (Other)
  Sender: FDA-Public Use
  Company Number: GB-GLAXOSMITHKLINE-B0373529A

PATIENT
  Age: 40 Year
  Sex: Female

DRUGS (5)
  1. NYTOL [Suspect]
     Indication: SLEEP DISORDER
     Route: 048
  2. NIGHT NURSE CAPSULES [Suspect]
     Indication: SLEEP DISORDER
     Route: 048
  3. NIGHT NURSE LIQUID [Suspect]
     Indication: SLEEP DISORDER
     Route: 048
  4. BENYLIN [Suspect]
     Indication: SLEEP DISORDER
     Route: 048
  5. STILNOCT [Suspect]
     Indication: SLEEP DISORDER
     Dosage: 10MG AT NIGHT
     Route: 048

REACTIONS (5)
  - ASTHENIA [None]
  - DRUG ABUSER [None]
  - DRUG DEPENDENCE [None]
  - FATIGUE [None]
  - INTENTIONAL MISUSE [None]
